FAERS Safety Report 7572100-9 (Version None)
Quarter: 2011Q2

REPORT INFORMATION
  Report Type: 
  Country: None (occurrence: None)
  Receive Date: 20110624
  Receipt Date: 20110620
  Transmission Date: 20111010
  Serious: Yes (Death, Hospitalization)
  Sender: FDA-Public Use
  Company Number: UG-ABBOTT-11P-165-0734409-00

PATIENT

DRUGS (3)
  1. RALTEGRAVIR [Concomitant]
     Indication: PRODUCT USED FOR UNKNOWN INDICATION
     Dates: start: 20110412, end: 20110606
  2. LOPINAVIR/RITONAVIR [Suspect]
     Indication: HIV INFECTION
     Route: 048
     Dates: start: 20110412, end: 20110606
  3. SEPTRA [Concomitant]
     Indication: PRODUCT USED FOR UNKNOWN INDICATION

REACTIONS (17)
  - DEHYDRATION [None]
  - PROTEIN-LOSING GASTROENTEROPATHY [None]
  - TACHYCARDIA [None]
  - DIARRHOEA [None]
  - SEPSIS [None]
  - ACUTE RESPIRATORY DISTRESS SYNDROME [None]
  - MYOCLONUS [None]
  - HYPERGLYCAEMIC HYPEROSMOLAR NONKETOTIC SYNDROME [None]
  - CONVULSION [None]
  - DIABETES MELLITUS [None]
  - HYPOALBUMINAEMIA [None]
  - DIABETIC KETOACIDOSIS [None]
  - CONDITION AGGRAVATED [None]
  - PYREXIA [None]
  - OEDEMA [None]
  - CARDIOPULMONARY FAILURE [None]
  - RALES [None]
